FAERS Safety Report 5903876-1 (Version None)
Quarter: 2008Q3

REPORT INFORMATION
  Report Type: 
  Country: None (occurrence: None)
  Receive Date: 20080919
  Receipt Date: 20080609
  Transmission Date: 20090109
  Serious: No
  Sender: FDA-Public Use
  Company Number: US-WYE-H04419208

PATIENT
  Age: 66 Year
  Sex: Female
  Weight: 74.91 kg

DRUGS (4)
  1. PRISTIQ (DESVENLAFAXINE SUCCINATE MONOHYDRATE [Suspect]
     Indication: DEPRESSION
     Dosage: 50 MG 1X PER 1 DAY, ORAL
     Route: 048
     Dates: start: 20080527
  2. PRILOSEC [Concomitant]
  3. LOVASTATIN [Concomitant]
  4. TRAZODONE HCL [Concomitant]

REACTIONS (11)
  - ANXIETY [None]
  - BALANCE DISORDER [None]
  - CONDITION AGGRAVATED [None]
  - CONTUSION [None]
  - COORDINATION ABNORMAL [None]
  - INSOMNIA [None]
  - MYDRIASIS [None]
  - RESTLESSNESS [None]
  - TREMOR [None]
  - VISION BLURRED [None]
  - VISUAL IMPAIRMENT [None]
